FAERS Safety Report 10676200 (Version 7)
Quarter: 2016Q3

REPORT INFORMATION
  Report Type: Spontaneous
  Country: AR (occurrence: AR)
  Receive Date: 20141226
  Receipt Date: 20160708
  Transmission Date: 20161109
  Serious: Yes (Hospitalization, Other)
  Sender: FDA-Public Use
  Company Number: AR-AMGEN-ARGSP2014100304

PATIENT
  Age: 69 Year
  Sex: Female

DRUGS (1)
  1. ENBREL [Suspect]
     Active Substance: ETANERCEPT
     Indication: RHEUMATOID ARTHRITIS
     Dosage: 50 MG, WEEKLY
     Route: 065
     Dates: start: 20080114

REACTIONS (27)
  - Varicella zoster virus infection [Not Recovered/Not Resolved]
  - Ligament rupture [Unknown]
  - Blood pressure decreased [Not Recovered/Not Resolved]
  - Blood test normal [Not Recovered/Not Resolved]
  - Condition aggravated [Recovering/Resolving]
  - Pain [Not Recovered/Not Resolved]
  - Burning sensation [Not Recovered/Not Resolved]
  - Balance disorder [Not Recovered/Not Resolved]
  - Eye disorder [Recovering/Resolving]
  - Arthritis [Recovering/Resolving]
  - Blood sodium decreased [Unknown]
  - Headache [Unknown]
  - Memory impairment [Unknown]
  - Hypertension [Unknown]
  - Gait disturbance [Unknown]
  - Decreased immune responsiveness [Recovering/Resolving]
  - Conjunctivitis viral [Recovered/Resolved]
  - Irritable bowel syndrome [Unknown]
  - Malaise [Unknown]
  - Pulmonary pain [Not Recovered/Not Resolved]
  - Meniscus injury [Unknown]
  - Insomnia [Unknown]
  - Blood pressure fluctuation [Unknown]
  - Diarrhoea [Recovered/Resolved]
  - Spinal disorder [Unknown]
  - Mobility decreased [Unknown]
  - Cervix disorder [Not Recovered/Not Resolved]

NARRATIVE: CASE EVENT DATE: 2014
